FAERS Safety Report 6869428-4 (Version None)
Quarter: 2010Q3

REPORT INFORMATION
  Report Type: 
  Country: None (occurrence: None)
  Receive Date: 20100722
  Receipt Date: 20080728
  Transmission Date: 20110219
  Serious: No
  Sender: FDA-Public Use
  Company Number: US-PFIZER INC-2008064760

PATIENT
  Sex: Female
  Weight: 59.42 kg

DRUGS (4)
  1. CHANTIX [Suspect]
     Indication: SMOKING CESSATION THERAPY
     Dates: start: 20080721
  2. ALL OTHER THERAPEUTIC PRODUCTS [Concomitant]
  3. LEXAPRO [Concomitant]
  4. XANAX [Concomitant]

REACTIONS (2)
  - DECREASED APPETITE [None]
  - DRY MOUTH [None]
